FAERS Safety Report 21325274 (Version 1)
Quarter: 2022Q3

REPORT INFORMATION
  Report Type: Spontaneous
  Country: US (occurrence: US)
  Receive Date: 20220912
  Receipt Date: 20220912
  Transmission Date: 20221026
  Serious: No
  Sender: FDA-Public Use
  Company Number: US-SANOFI-01261247

PATIENT
  Age: 29 Year
  Sex: Male

DRUGS (1)
  1. DUPIXENT [Suspect]
     Active Substance: DUPILUMAB
     Indication: Nasal polyps
     Dosage: FIRST DOSE

REACTIONS (4)
  - Injection site reaction [Recovered/Resolved with Sequelae]
  - Pruritus [Unknown]
  - Skin exfoliation [Unknown]
  - Product use in unapproved indication [Unknown]
